FAERS Safety Report 8205317-0 (Version None)
Quarter: 2012Q1

REPORT INFORMATION
  Report Type: 
  Country: None (occurrence: None)
  Receive Date: 20120313
  Receipt Date: 20120301
  Transmission Date: 20120608
  Serious: Yes (Other)
  Sender: FDA-Public Use
  Company Number: CA-JNJFOC-20120301394

PATIENT
  Sex: Female
  Weight: 45 kg

DRUGS (3)
  1. LOESTRIN 1.5/30 [Concomitant]
     Route: 065
  2. REMICADE [Suspect]
     Indication: CROHN'S DISEASE
     Route: 042
  3. DERMOVAT [Concomitant]
     Route: 065

REACTIONS (1)
  - PANIC ATTACK [None]
